FAERS Safety Report 22018635 (Version 3)
Quarter: 2023Q4

REPORT INFORMATION
  Report Type: Spontaneous
  Country: US (occurrence: US)
  Receive Date: 20230222
  Receipt Date: 20231221
  Transmission Date: 20240110
  Serious: Yes (Hospitalization, Other)
  Sender: FDA-Public Use
  Company Number: US-BIOVITRUM-2023US02744

PATIENT
  Age: 21 Year
  Sex: Male

DRUGS (3)
  1. KINERET [Suspect]
     Active Substance: ANAKINRA
     Indication: Rheumatoid arthritis
     Dosage: 200 MG DAILY
     Route: 058
     Dates: start: 202204
  2. KINERET [Suspect]
     Active Substance: ANAKINRA
     Dosage: 100 MG DAILY
     Route: 065
  3. KINERET [Suspect]
     Active Substance: ANAKINRA
     Dosage: 200 MG DAILY
     Route: 058
     Dates: start: 20220412

REACTIONS (3)
  - Near death experience [Unknown]
  - Off label use [Not Recovered/Not Resolved]
  - Product dose omission issue [Unknown]
